FAERS Safety Report 7307745-4 (Version None)
Quarter: 2011Q1

REPORT INFORMATION
  Report Type: 
  Country: None (occurrence: None)
  Receive Date: 20110223
  Receipt Date: 20110210
  Transmission Date: 20110831
  Serious: Yes (Other)
  Sender: FDA-Public Use
  Company Number: US-ELI_LILLY_AND_COMPANY-US201102003563

PATIENT
  Age: 47 Year
  Sex: Female

DRUGS (8)
  1. ZOLPIDEM [Concomitant]
     Dosage: 15 MG, EACH EVENING
  2. VERAPAMIL [Concomitant]
     Dosage: 240 MG, DAILY (1/D)
  3. ALPRAZOLAM [Concomitant]
  4. LIOTHYRONINE SODIUM [Concomitant]
     Dosage: 5 UG, 2/D
  5. TRANDOLAPRIL [Concomitant]
     Dosage: 4 MG, DAILY (1/D)
  6. STRATTERA [Concomitant]
     Dosage: 100 MG, UNK
  7. METOPROLOL [Concomitant]
     Dosage: 25 MG, EACH EVENING
  8. CYMBALTA [Suspect]
     Indication: DEPRESSION
     Dosage: 120 MG, UNK
     Dates: start: 20100901

REACTIONS (1)
  - VASCULITIS [None]
